FAERS Safety Report 25445777 (Version 4)
Quarter: 2025Q3

REPORT INFORMATION
  Report Type: Spontaneous
  Country: ZA (occurrence: ZA)
  Receive Date: 20250617
  Receipt Date: 20250820
  Transmission Date: 20251021
  Serious: Yes (Other)
  Sender: TAKEDA
  Company Number: ZA-TAKEDA-2025TUS055318

PATIENT
  Sex: Female

DRUGS (3)
  1. ALUNBRIG [Suspect]
     Active Substance: BRIGATINIB
     Indication: Non-small cell lung cancer
     Dosage: 90 MILLIGRAM, QD
  2. ALUNBRIG [Suspect]
     Active Substance: BRIGATINIB
  3. ALUNBRIG [Suspect]
     Active Substance: BRIGATINIB

REACTIONS (1)
  - Pathological fracture [Recovered/Resolved]
